FAERS Safety Report 9410844 (Version 4)
Quarter: 2014Q2

REPORT INFORMATION
  Report Type: Spontaneous
  Country: US (occurrence: US)
  Receive Date: 20130719
  Receipt Date: 20140415
  Transmission Date: 20141212
  Serious: Yes (Hospitalization)
  Sender: FDA-Public Use
  Company Number: US-B.I. PHARMACEUTICALS,INC./RIDGEFIELD-2013-BI-20738BP

PATIENT
  Age: 77 Year
  Sex: Male

DRUGS (6)
  1. PRADAXA [Suspect]
     Indication: ATRIAL FIBRILLATION
     Dosage: 300 MG
     Route: 048
     Dates: start: 20130627, end: 20130630
  2. ASPIRIN [Concomitant]
     Route: 065
  3. DIGOXIN [Concomitant]
     Route: 065
  4. IMURAN [Concomitant]
     Route: 065
  5. NITROGLYCERINE [Concomitant]
     Route: 065
  6. PYRIDOSTIGMINE [Concomitant]
     Route: 065

REACTIONS (1)
  - Haemorrhagic stroke [Not Recovered/Not Resolved]
